FAERS Safety Report 11347361 (Version 1)
Quarter: 2015Q3

REPORT INFORMATION
  Report Type: Spontaneous
  Country: US (occurrence: US)
  Receive Date: 20150803
  Receipt Date: 20150803
  Transmission Date: 20151125
  Serious: No
  Sender: FDA-Public Use
  Company Number: US-ELI_LILLY_AND_COMPANY-US201103004152

PATIENT
  Sex: Male

DRUGS (1)
  1. ZYPREXA [Suspect]
     Active Substance: OLANZAPINE
     Indication: EUPHORIC MOOD
     Dosage: 20 MG, DAILY (1/D)
     Dates: start: 1991

REACTIONS (3)
  - Insomnia [Unknown]
  - Off label use [Recovered/Resolved]
  - Drug withdrawal syndrome [Unknown]
